FAERS Safety Report 6804449-9 (Version None)
Quarter: 2010Q2

REPORT INFORMATION
  Report Type: 
  Country: None (occurrence: None)
  Receive Date: 20100628
  Receipt Date: 20070322
  Transmission Date: 20101027
  Serious: No
  Sender: FDA-Public Use
  Company Number: US-PFIZER INC-2007023738

PATIENT
  Sex: Female
  Weight: 79.38 kg

DRUGS (6)
  1. GENOTROPIN [Suspect]
     Indication: BLOOD GROWTH HORMONE DECREASED
     Dates: start: 20070201, end: 20070301
  2. ESTRACE [Concomitant]
  3. SYNTHROID [Concomitant]
  4. FORTUM [Concomitant]
  5. PARLODEL [Concomitant]
  6. GLUCOPHAGE [Concomitant]

REACTIONS (2)
  - GINGIVAL DISORDER [None]
  - GINGIVAL INFECTION [None]
